FAERS Safety Report 10103118 (Version 2)
Quarter: 2014Q2

REPORT INFORMATION
  Report Type: Spontaneous
  Country: US (occurrence: US)
  Receive Date: 20140424
  Receipt Date: 20140424
  Transmission Date: 20141212
  Serious: Yes (Hospitalization)
  Sender: FDA-Public Use
  Company Number: US-GLAXOSMITHKLINE-A1070185A

PATIENT
  Age: 47 Year
  Sex: Female

DRUGS (1)
  1. EPIVIR HBV [Suspect]
     Indication: HEPATITIS B
     Dosage: 100MG UNKNOWN
     Route: 065
     Dates: start: 20100115

REACTIONS (1)
  - Investigation [Not Recovered/Not Resolved]
